FAERS Safety Report 10731441 (Version 2)
Quarter: 2021Q2

REPORT INFORMATION
  Report Type: Spontaneous
  Country: US (occurrence: US)
  Receive Date: 20150123
  Receipt Date: 20210610
  Transmission Date: 20210716
  Serious: Yes (Hospitalization, Other)
  Sender: FDA-Public Use
  Company Number: US-AUROBINDO-AUR-APL-2015-00381

PATIENT
  Age: 28 Year
  Sex: Male

DRUGS (1)
  1. TRIMETHOPRIM+SULFAMETHOXAZOLE [Suspect]
     Active Substance: SULFAMETHOXAZOLE\TRIMETHOPRIM
     Indication: URINARY TRACT INFECTION
     Dosage: UNK
     Route: 065

REACTIONS (24)
  - Toxic epidermal necrolysis [Recovered/Resolved]
  - Pain [Recovered/Resolved]
  - Gastrointestinal necrosis [Recovered/Resolved]
  - Oral mucosal exfoliation [Recovered/Resolved]
  - White blood cell count increased [Recovered/Resolved]
  - Ascites [Recovered/Resolved]
  - Skin exfoliation [Recovered/Resolved]
  - Mouth ulceration [Recovered/Resolved]
  - Lip exfoliation [Recovered/Resolved]
  - Blister [Recovered/Resolved]
  - Pyrexia [Recovered/Resolved]
  - Dyspnoea [Recovered/Resolved]
  - Enteritis [Recovered/Resolved]
  - Nikolsky^s sign [Recovered/Resolved]
  - Blood lactic acid increased [Recovered/Resolved]
  - Intestinal ischaemia [Recovered/Resolved]
  - Small intestinal obstruction [Recovered/Resolved]
  - Portal venous gas [Recovered/Resolved]
  - Epidermal necrosis [Recovered/Resolved]
  - Pneumatosis intestinalis [Recovered/Resolved]
  - Thrombosis [Recovered/Resolved]
  - Hypoxia [Recovered/Resolved]
  - Abdominal distension [Recovered/Resolved]
  - Abdominal pain [Recovered/Resolved]
